FAERS Safety Report 5272790-X (Version None)
Quarter: 2007Q1

REPORT INFORMATION
  Report Type: 
  Country: None (occurrence: None)
  Receive Date: 20070322
  Receipt Date: 20070313
  Transmission Date: 20070707
  Serious: Yes (Other)
  Sender: FDA-Public Use
  Company Number: DE-ROCHE-486180

PATIENT
  Sex: Male

DRUGS (1)
  1. VALCYTE [Suspect]
     Dosage: INDICATION REPORTED AS KIDNEY TRANSPLANTATION (NTX), CMV REACTIVATION.
     Route: 048
     Dates: start: 20061214, end: 20070209

REACTIONS (2)
  - NEUTROPENIA [None]
  - PNEUMOCYSTIS JIROVECI PNEUMONIA [None]
